FAERS Safety Report 7429743-2 (Version None)
Quarter: 2011Q2

REPORT INFORMATION
  Report Type: 
  Country: None (occurrence: None)
  Receive Date: 20110421
  Receipt Date: 20110412
  Transmission Date: 20111010
  Serious: Yes (Hospitalization, Disabling, Other)
  Sender: FDA-Public Use
  Company Number: US-BRISTOL-MYERS SQUIBB COMPANY-15645294

PATIENT
  Age: 70 Year
  Sex: Female

DRUGS (3)
  1. ATIVAN [Concomitant]
     Dosage: 1DF:1-1/2MG Q6H
     Route: 048
     Dates: start: 20110324
  2. IPILIMUMAB [Suspect]
     Indication: MALIGNANT MELANOMA
     Route: 042
     Dates: start: 20110324, end: 20110401
  3. METFORMIN HCL [Suspect]
     Route: 048
     Dates: start: 20060101

REACTIONS (4)
  - OVERDOSE [None]
  - MENTAL STATUS CHANGES [None]
  - VISUAL IMPAIRMENT [None]
  - RESPIRATORY FAILURE [None]
